FAERS Safety Report 8231126-2 (Version None)
Quarter: 2012Q1

REPORT INFORMATION
  Report Type: 
  Country: None (occurrence: None)
  Receive Date: 20120323
  Receipt Date: 20120313
  Transmission Date: 20120608
  Serious: Yes (Hospitalization)
  Sender: FDA-Public Use
  Company Number: US-JNJFOC-20120308052

PATIENT
  Sex: Female
  Weight: 86.6 kg

DRUGS (7)
  1. SYNTHROID [Concomitant]
  2. ANTIHISTAMINES [Concomitant]
     Indication: PREMEDICATION
  3. REMICADE [Suspect]
     Route: 042
     Dates: start: 20090511
  4. NEXIUM [Concomitant]
  5. REMICADE [Suspect]
     Indication: CROHN'S DISEASE
     Route: 042
     Dates: start: 20111027
  6. BUDESONIDE [Concomitant]
  7. ACETAMINOPHEN [Concomitant]
     Indication: PREMEDICATION

REACTIONS (1)
  - CROHN'S DISEASE [None]
